FAERS Safety Report 9601331 (Version 1)
Quarter: 2013Q4

REPORT INFORMATION
  Report Type: Spontaneous
  Country: US (occurrence: US)
  Receive Date: 20131007
  Receipt Date: 20131007
  Transmission Date: 20140711
  Serious: Yes (Other)
  Sender: FDA-Public Use
  Company Number: PHHY2013US109685

PATIENT
  Age: 23 Year
  Sex: Female

DRUGS (2)
  1. LEUPRORELIN [Suspect]
  2. ESTROGEN [Concomitant]

REACTIONS (6)
  - Intracranial pressure increased [Recovering/Resolving]
  - Headache [Recovering/Resolving]
  - Diplopia [Unknown]
  - VIth nerve paresis [Unknown]
  - Vision blurred [Unknown]
  - Papilloedema [Unknown]
